FAERS Safety Report 9803158 (Version 1)
Quarter: 2014Q1

REPORT INFORMATION
  Report Type: Spontaneous
  Country: US (occurrence: US)
  Receive Date: 20140108
  Receipt Date: 20140108
  Transmission Date: 20141002
  Serious: No
  Sender: FDA-Public Use
  Company Number: US-PFIZER INC-2014003411

PATIENT
  Age: 63 Year
  Sex: Female

DRUGS (13)
  1. XELJANZ [Suspect]
     Indication: RHEUMATOID ARTHRITIS
     Dosage: 5 MG, 2X/DAY (EVERY 12 HOURS)
     Route: 048
  2. VITAMIN C [Concomitant]
     Dosage: UNK
  3. VITAMIN B COMPLEX [Concomitant]
     Dosage: UNK
  4. VITAMIN B-12 [Concomitant]
     Dosage: UNK
  5. LISINOPRIL [Concomitant]
     Dosage: UNK
  6. PRO-AIR [Concomitant]
     Dosage: UNK
  7. TRIAMCINOLONE [Concomitant]
     Dosage: UNK
  8. ESTRADIOL [Concomitant]
     Dosage: UNK
  9. FLUTICASONE [Concomitant]
     Dosage: UNK
  10. CARBAMAZEPINE [Concomitant]
     Dosage: UNK
  11. GABAPENTIN [Concomitant]
     Dosage: UNK
  12. CARVEDILOL [Concomitant]
     Dosage: UNK
  13. BACLOFEN [Concomitant]
     Dosage: UNK

REACTIONS (6)
  - Neuropathy peripheral [Unknown]
  - Trigeminal neuralgia [Unknown]
  - Ear discomfort [Unknown]
  - Ear infection [Unknown]
  - Hypoaesthesia oral [Unknown]
  - Hypoaesthesia [Unknown]
